FAERS Safety Report 18659710 (Version 7)
Quarter: 2022Q1

REPORT INFORMATION
  Report Type: Spontaneous
  Country: US (occurrence: US)
  Receive Date: 20201224
  Receipt Date: 20220113
  Transmission Date: 20220423
  Serious: Yes (Death, Other)
  Sender: FDA-Public Use
  Company Number: US-PFIZER INC-2020510254

PATIENT
  Age: 81 Year
  Sex: Male
  Weight: 58.97 kg

DRUGS (7)
  1. VYNDAMAX [Suspect]
     Active Substance: TAFAMIDIS
     Indication: Amyloidosis
     Dosage: 61 MG, 1X/DAY
     Route: 048
     Dates: start: 202010
  2. AMIODARONE [Concomitant]
     Active Substance: AMIODARONE
     Indication: Cardiac disorder
     Dosage: 200 MG, 1X/DAY
     Route: 048
     Dates: start: 202009
  3. ELIQUIS [Concomitant]
     Active Substance: APIXABAN
     Dosage: 2.5 MG, 2X/DAY
     Dates: start: 2014
  4. DULOXETINE [Concomitant]
     Active Substance: DULOXETINE
     Dosage: 60 MG, 1X/DAY (BEDTIME)
     Dates: start: 2020
  5. PRAVASTATIN [Concomitant]
     Active Substance: PRAVASTATIN
     Indication: Blood cholesterol increased
     Dosage: 80 MG, 1X/DAY (BEDTIME)
     Route: 048
     Dates: start: 2014
  6. POTASSIUM CHLORIDE [Concomitant]
     Active Substance: POTASSIUM CHLORIDE
     Indication: Atrial fibrillation
     Dosage: 20 MEQ, 2X/DAY
     Route: 048
  7. TORSEMIDE [Concomitant]
     Active Substance: TORSEMIDE
     Indication: Cardiac disorder
     Dosage: 100 MG, 1X/DAY
     Route: 048
     Dates: start: 2020

REACTIONS (3)
  - Death [Fatal]
  - Dementia [Unknown]
  - Hallucination [Unknown]

NARRATIVE: CASE EVENT DATE: 20200101
